FAERS Safety Report 8154884-4 (Version None)
Quarter: 2012Q1

REPORT INFORMATION
  Report Type: 
  Country: None (occurrence: None)
  Receive Date: 20120221
  Receipt Date: 20120214
  Transmission Date: 20120608
  Serious: Yes (Other)
  Sender: FDA-Public Use
  Company Number: PHHY2012BR013670

PATIENT
  Sex: Female

DRUGS (5)
  1. DIOVAN HCT [Suspect]
     Indication: HYPERTENSION
     Dosage: ONE TABLET DAILY
  2. ALDOMET [Concomitant]
     Dosage: 500 MG, UNK
  3. YASMIN [Concomitant]
     Indication: CONTRACEPTION
     Dosage: UNK
  4. DIOVAN HCT [Suspect]
     Dosage: 160/12.5 MG, UNK
  5. APRESOLINE [Suspect]
     Dosage: 50 MG, UNK

REACTIONS (4)
  - BLOOD PRESSURE INCREASED [None]
  - PREMATURE DELIVERY [None]
  - DIABETES MELLITUS [None]
  - MATERNAL EXPOSURE DURING PREGNANCY [None]
